FAERS Safety Report 8061855-5 (Version None)
Quarter: 2012Q1

REPORT INFORMATION
  Report Type: 
  Country: None (occurrence: None)
  Receive Date: 20120123
  Receipt Date: 20120118
  Transmission Date: 20120608
  Serious: No
  Sender: FDA-Public Use
  Company Number: US-PFIZER INC-2011305431

PATIENT
  Sex: Female
  Weight: 24.036 kg

DRUGS (3)
  1. GENOTROPIN [Suspect]
     Dosage: 0.8 MG, 7 DAYS A WEEK
     Route: 058
  2. LEVOTHYROXINE SODIUM [Concomitant]
     Dosage: 88 UG, UNK
  3. HYDROCORT [Concomitant]
     Dosage: 10 MG, UNK

REACTIONS (1)
  - INJECTION SITE PAIN [None]
